FAERS Safety Report 6382474-2 (Version None)
Quarter: 2009Q3

REPORT INFORMATION
  Report Type: 
  Country: None (occurrence: None)
  Receive Date: 20090924
  Receipt Date: 20081028
  Transmission Date: 20100115
  Serious: Yes (Other)
  Sender: FDA-Public Use
  Company Number: IWAES 0810USA04954

PATIENT
  Sex: Male

DRUGS (1)
  1. VYTORIN [Suspect]
     Indication: BLOOD CHOLESTEROL INCREASED
     Dosage: 10-20 MG/DAILY/PO
     Route: 048

REACTIONS (1)
  - STEVENS-JOHNSON SYNDROME [None]
